FAERS Safety Report 15601263 (Version 6)
Quarter: 2019Q2

REPORT INFORMATION
  Report Type: Report from Study
  Country: PL (occurrence: PL)
  Receive Date: 20181109
  Receipt Date: 20190502
  Transmission Date: 20190711
  Serious: Yes (Hospitalization)
  Sender: FDA-Public Use
  Company Number: PL-ROCHE-2207829

PATIENT
  Age: 49 Year
  Sex: Female
  Weight: 65 kg

DRUGS (27)
  1. LOKREN [Concomitant]
     Active Substance: BETAXOLOL HYDROCHLORIDE
     Route: 048
     Dates: start: 20181029
  2. ZYRTEC [Concomitant]
     Active Substance: CETIRIZINE HYDROCHLORIDE
     Indication: PREMEDICATION
     Route: 048
     Dates: start: 20180227, end: 20180227
  3. PARACETAMOL [Concomitant]
     Active Substance: ACETAMINOPHEN
     Dosage: SUBSEQUENT DOSE (1000 MG) ON: 11/FEB/2019.
     Route: 048
     Dates: start: 20180817, end: 20180817
  4. CLEXANE [Concomitant]
     Active Substance: ENOXAPARIN SODIUM
     Route: 058
     Dates: start: 20181028, end: 20181106
  5. LACTOBACILLUS NOS [Concomitant]
     Active Substance: LACTOBACILLUS ACIDOPHILUS
     Route: 048
     Dates: start: 20181107, end: 20181109
  6. METHYLPREDNISOLONE. [Suspect]
     Active Substance: METHYLPREDNISOLONE
     Indication: PREMEDICATION
     Dosage: 21/SEP/2018 START TIME: 12: 40, STOP TIME: 12: 55. SUBSEQUENT DOSES RECEIVED ON: 06/OCT/2017 (START
     Route: 042
     Dates: start: 20170921
  7. ZYRTEC [Concomitant]
     Active Substance: CETIRIZINE HYDROCHLORIDE
     Dosage: SUBSEQUENT DOSE (10 MG) ON:11/FEB/2019.
     Route: 048
     Dates: start: 20180817, end: 20180817
  8. OCRELIZUMAB. [Suspect]
     Active Substance: OCRELIZUMAB
     Indication: RELAPSING-REMITTING MULTIPLE SCLEROSIS
     Dosage: MOST RECENT DOSE (600 MG) OF OCRELIZUMAB PRIOR TO EVENT: 17/AUG/2018?TWO 300 MILLIGRAM (MG) INFUSION
     Route: 042
     Dates: start: 20170921
  9. PRESTARIUM [PERINDOPRIL] [Concomitant]
     Route: 048
     Dates: start: 20180414
  10. TEGRETOL [Concomitant]
     Active Substance: CARBAMAZEPINE
     Route: 048
     Dates: start: 20180626, end: 20180813
  11. TEGRETOL [Concomitant]
     Active Substance: CARBAMAZEPINE
     Route: 048
     Dates: start: 20180423, end: 20180625
  12. TEGRETOL [Concomitant]
     Active Substance: CARBAMAZEPINE
     Route: 048
     Dates: start: 20180814, end: 20181028
  13. TEGRETOL [Concomitant]
     Active Substance: CARBAMAZEPINE
     Route: 048
     Dates: start: 20181029
  14. AMERTIL [Concomitant]
     Active Substance: CETIRIZINE HYDROCHLORIDE
     Indication: PREMEDICATION
     Route: 048
     Dates: start: 20170921, end: 20170921
  15. LACTOBACILLUS NOS [Concomitant]
     Active Substance: LACTOBACILLUS ACIDOPHILUS
     Route: 048
     Dates: start: 20181028, end: 20181106
  16. PARACETAMOL [Concomitant]
     Active Substance: ACETAMINOPHEN
     Indication: PREMEDICATION
     Route: 048
     Dates: start: 20180227, end: 20180227
  17. BACLOFEN. [Concomitant]
     Active Substance: BACLOFEN
     Route: 048
     Dates: start: 20181028
  18. SIRDALUD [Concomitant]
     Active Substance: TIZANIDINE
     Route: 048
  19. AMERTIL [Concomitant]
     Active Substance: CETIRIZINE HYDROCHLORIDE
     Route: 048
     Dates: start: 20171006, end: 20171006
  20. PANZOL [Concomitant]
     Active Substance: PANTOPRAZOLE SODIUM
     Route: 048
     Dates: start: 20181029
  21. FURAGINUM [Concomitant]
     Active Substance: FURAZIDINE
     Indication: PROPHYLAXIS
     Route: 048
     Dates: start: 20180409, end: 20181127
  22. LOKREN [Concomitant]
     Active Substance: BETAXOLOL HYDROCHLORIDE
     Route: 048
     Dates: end: 20181028
  23. PRESTARIUM [PERINDOPRIL] [Concomitant]
     Route: 048
     Dates: end: 20180413
  24. SERTAGEN [Concomitant]
     Active Substance: SERTRALINE HYDROCHLORIDE
     Route: 048
  25. TEGRETOL [Concomitant]
     Active Substance: CARBAMAZEPINE
     Route: 048
     Dates: start: 20180409, end: 20180422
  26. TULIP [ATORVASTATIN CALCIUM] [Concomitant]
     Route: 048
     Dates: start: 20170416
  27. DITROPAN [Concomitant]
     Active Substance: OXYBUTYNIN CHLORIDE
     Route: 048
     Dates: start: 20181028

REACTIONS (1)
  - Urosepsis [Recovered/Resolved]

NARRATIVE: CASE EVENT DATE: 20181028
